FAERS Safety Report 25820929 (Version 1)
Quarter: 2025Q3

REPORT INFORMATION
  Report Type: Spontaneous
  Country: US (occurrence: US)
  Receive Date: 20250919
  Receipt Date: 20250919
  Transmission Date: 20251020
  Serious: Yes (Life-Threatening, Hospitalization, Other)
  Sender: AMGEN
  Company Number: US-AMGEN-USASP2025180814

PATIENT
  Age: 16 Year
  Sex: Male

DRUGS (6)
  1. PREDNISONE [Suspect]
     Active Substance: PREDNISONE
     Indication: Duchenne muscular dystrophy
     Route: 048
  2. PREDNISONE [Suspect]
     Active Substance: PREDNISONE
     Route: 048
  3. CARVEDILOL [Concomitant]
     Active Substance: CARVEDILOL
     Indication: Dilated cardiomyopathy
     Dosage: 12.5 MILLIGRAM, BID
     Route: 048
  4. CARVEDILOL [Concomitant]
     Active Substance: CARVEDILOL
     Indication: Cardiac failure acute
     Dosage: 25 MILLIGRAM, BID
     Route: 048
  5. EPLERENONE [Concomitant]
     Active Substance: EPLERENONE
     Indication: Dilated cardiomyopathy
     Dosage: 25 MILLIGRAM, QD
     Route: 048
  6. EPLERENONE [Concomitant]
     Active Substance: EPLERENONE
     Indication: Cardiac failure acute
     Dosage: 25 MILLIGRAM, BID
     Route: 048

REACTIONS (13)
  - Cardiac failure acute [Unknown]
  - Atrial flutter [Unknown]
  - Ventricular tachycardia [Unknown]
  - Cerebrovascular accident [Unknown]
  - Restrictive pulmonary disease [Unknown]
  - Sleep-related hypoventilation [Unknown]
  - Obstructive sleep apnoea syndrome [Unknown]
  - Endocardial fibroelastosis [Unknown]
  - Myopathy [Unknown]
  - Cardiac hypertrophy [Unknown]
  - Myocardial fibrosis [Unknown]
  - Wheelchair user [Unknown]
  - Off label use [Unknown]
